FAERS Safety Report 7477819-6 (Version None)
Quarter: 2011Q2

REPORT INFORMATION
  Report Type: 
  Country: None (occurrence: None)
  Receive Date: 20110513
  Receipt Date: 20110429
  Transmission Date: 20111010
  Serious: Yes (Hospitalization)
  Sender: FDA-Public Use
  Company Number: US-ELI_LILLY_AND_COMPANY-US201105001045

PATIENT
  Sex: Female

DRUGS (2)
  1. FORTEO [Suspect]
     Indication: OSTEOPOROSIS
     Dosage: 20 UG, QD
     Route: 065
     Dates: end: 20110322
  2. VITAMINS [Concomitant]
     Dosage: UNK
     Route: 065

REACTIONS (5)
  - CYSTITIS [None]
  - CONFUSIONAL STATE [None]
  - PNEUMONIA [None]
  - DEHYDRATION [None]
  - MALAISE [None]
